FAERS Safety Report 9174515 (Version 2)
Quarter: 2013Q2

REPORT INFORMATION
  Report Type: Spontaneous
  Country: FR (occurrence: FR)
  Receive Date: 20130320
  Receipt Date: 20130417
  Transmission Date: 20140414
  Serious: Yes (Hospitalization, Other)
  Sender: FDA-Public Use
  Company Number: FR-ELI_LILLY_AND_COMPANY-FR201303002733

PATIENT
  Age: 40 Year
  Sex: Female

DRUGS (9)
  1. PROZAC [Suspect]
     Indication: DEPRESSION
     Dosage: 20 MG, QD
     Route: 048
     Dates: start: 20121214, end: 20121229
  2. TYSABRI [Concomitant]
     Indication: MULTIPLE SCLEROSIS
     Dosage: 300 MG, MONTHLY (1/M)
     Dates: start: 20090908
  3. SYMBICORT [Concomitant]
     Indication: ASTHMA
     Dosage: 400 UG, BID
     Route: 055
     Dates: start: 20121214
  4. MIANSERINE [Concomitant]
     Indication: DEPRESSION
     Dosage: UNK UNK, UNKNOWN
     Dates: end: 20121214
  5. MIANSERINE [Concomitant]
     Dosage: 60 MG, QD
     Dates: start: 20121214, end: 20121221
  6. VENTOLINE                          /00139501/ [Concomitant]
     Indication: ASTHMA
     Dosage: UNK, PRN
     Dates: start: 20121214
  7. EDUCTYL [Concomitant]
     Dosage: UNK, PRN
     Dates: start: 20121214
  8. MOVICOL [Concomitant]
     Dosage: UNK, PRN
     Dates: start: 20121214
  9. MELAXOSE [Concomitant]
     Dosage: UNK, PRN
     Dates: start: 20121214

REACTIONS (1)
  - Migraine [Recovered/Resolved]
